FAERS Safety Report 5210713-X (Version None)
Quarter: 2007Q1

REPORT INFORMATION
  Report Type: 
  Country: None (occurrence: None)
  Receive Date: 20070116
  Receipt Date: 20070116
  Transmission Date: 20070707
  Serious: No
  Sender: FDA-Public Use
  Company Number: None

PATIENT
  Age: 54 Year
  Sex: Female
  Weight: 99.7913 kg

DRUGS (2)
  1. CLONAZEPAM 4MG [Suspect]
     Dosage: 1MG BID  PO
     Route: 048
     Dates: start: 19961001
  2. KLONOPIN [Concomitant]

REACTIONS (2)
  - AGITATION [None]
  - TREMOR [None]
